FAERS Safety Report 5217669-4 (Version None)
Quarter: 2006Q4

REPORT INFORMATION
  Report Type: 
  Country: None (occurrence: None)
  Receive Date: 20061130
  Receipt Date: 20060726
  Transmission Date: 20070319
  Serious: Yes (Hospitalization)
  Sender: FDA-Public Use
  Company Number: US200512002848

PATIENT
  Age: 40 Year
  Sex: Male
  Weight: 99.8 kg

DRUGS (3)
  1. ZYPREXA [Suspect]
     Indication: SCHIZOPHRENIA
     Dosage: 10 MG
     Dates: start: 20021101
  2. ZIPRASIDONE HCL [Concomitant]
  3. SERTRALINE [Concomitant]

REACTIONS (3)
  - BLOOD CHOLESTEROL INCREASED [None]
  - DIABETES MELLITUS NON-INSULIN-DEPENDENT [None]
  - HYPERTENSION [None]
